FAERS Safety Report 12567137 (Version 2)
Quarter: 2016Q3

REPORT INFORMATION
  Report Type: Spontaneous
  Country: AU (occurrence: AU)
  Receive Date: 20160718
  Receipt Date: 20160718
  Transmission Date: 20161109
  Serious: Yes (Other)
  Sender: FDA-Public Use
  Company Number: AU-APOTEX-2016AP009803

PATIENT
  Age: 42 Year
  Sex: Male

DRUGS (5)
  1. APO-ZOLPIDEM [Suspect]
     Active Substance: ZOLPIDEM TARTRATE
     Indication: TINNITUS
     Dosage: UNK UNK, UNKNOWN
     Route: 065
  2. OMEPRAZOLE. [Concomitant]
     Active Substance: OMEPRAZOLE
     Indication: PRODUCT USED FOR UNKNOWN INDICATION
     Dosage: UNK, UNKNOWN
     Route: 065
  3. PAROXETINE. [Interacting]
     Active Substance: PAROXETINE
     Indication: ANTIDEPRESSANT THERAPY
     Dosage: UNK UNK, UNKNOWN
     Route: 065
  4. APOTEX-VENLAFAXINE XR [Interacting]
     Active Substance: VENLAFAXINE HYDROCHLORIDE
     Indication: ANTIDEPRESSANT THERAPY
     Dosage: UNK UNK, UNKNOWN
     Route: 065
  5. TEMAZEPAM. [Concomitant]
     Active Substance: TEMAZEPAM
     Indication: PRODUCT USED FOR UNKNOWN INDICATION
     Dosage: UNK, UNKNOWN
     Route: 065

REACTIONS (5)
  - Personality change [Unknown]
  - Job dissatisfaction [Unknown]
  - Off label use [Unknown]
  - Drug interaction [Unknown]
  - Personal relationship issue [Unknown]
